FAERS Safety Report 5711312-3 (Version None)
Quarter: 2008Q2

REPORT INFORMATION
  Report Type: 
  Country: None (occurrence: None)
  Receive Date: 20080418
  Receipt Date: 20080418
  Transmission Date: 20081010
  Serious: No
  Sender: FDA-Public Use
  Company Number: None

PATIENT
  Age: 77 Year
  Sex: Male

DRUGS (3)
  1. CARBOPLATIN [Suspect]
  2. TAXOL [Suspect]
  3. SORAFENIB [Suspect]

REACTIONS (7)
  - DEHYDRATION [None]
  - DIARRHOEA [None]
  - FEBRILE NEUTROPENIA [None]
  - HYPERTENSION [None]
  - INFUSION SITE EXTRAVASATION [None]
  - METASTATIC MALIGNANT MELANOMA [None]
  - THROMBOCYTOPENIA [None]
